FAERS Safety Report 23518047 (Version 1)
Quarter: 2024Q1

REPORT INFORMATION
  Report Type: Spontaneous
  Country: US (occurrence: None)
  Receive Date: 20240213
  Receipt Date: 20240213
  Transmission Date: 20240409
  Serious: Yes (Hospitalization)
  Sender: FDA-Public Use
  Company Number: None

PATIENT
  Sex: Female

DRUGS (2)
  1. EVEROLIMUS [Suspect]
     Active Substance: EVEROLIMUS
     Indication: Renal transplant
     Dosage: TAKE 2 TABLETS BY MOUTH IN THE MORNING AND 1 TABLET IN THE EVENING.?
     Route: 048
     Dates: start: 202208
  2. NEORAL ORAL SOLN [Concomitant]

REACTIONS (1)
  - Hospitalisation [None]
